FAERS Safety Report 6189525-9 (Version None)
Quarter: 2009Q2

REPORT INFORMATION
  Report Type: 
  Country: None (occurrence: None)
  Receive Date: 20090512
  Receipt Date: 20090427
  Transmission Date: 20091009
  Serious: Yes (Hospitalization, Other)
  Sender: FDA-Public Use
  Company Number: 2009EU001536

PATIENT
  Age: 63 Year
  Sex: Male
  Weight: 59 kg

DRUGS (4)
  1. PROGRAF [Suspect]
     Indication: HEART TRANSPLANT
     Dosage: 6 MG, UID/QD, ORAL, 3.5 MG, BID, 1.5 MG, BID
     Dates: start: 20060615, end: 20090420
  2. PROGRAF [Suspect]
     Indication: HEART TRANSPLANT
     Dosage: 6 MG, UID/QD, ORAL, 3.5 MG, BID, 1.5 MG, BID
     Dates: start: 20081201
  3. CELLCEPT [Concomitant]
  4. PREDNISOLONE [Concomitant]

REACTIONS (8)
  - ACCIDENTAL OVERDOSE [None]
  - ANAEMIA [None]
  - DEHYDRATION [None]
  - DIARRHOEA [None]
  - GASTROENTERITIS [None]
  - HYPOTENSION [None]
  - RENAL FAILURE [None]
  - WEIGHT DECREASED [None]
